FAERS Safety Report 9482461 (Version 1)
Quarter: 2013Q3

REPORT INFORMATION
  Report Type: Spontaneous
  Country: US (occurrence: US)
  Receive Date: 20130828
  Receipt Date: 20130828
  Transmission Date: 20140515
  Serious: Yes (Other)
  Sender: FDA-Public Use
  Company Number: US-BAYER-2013-103841

PATIENT
  Age: 17 Year
  Sex: Female
  Weight: 66 kg

DRUGS (3)
  1. ALEVE CAPLET [Suspect]
     Dosage: 30 DF, UNK
     Route: 048
  2. ALEVE CAPLET [Suspect]
     Dosage: 30 DF, ONCE
     Route: 048
     Dates: start: 20130826, end: 20130826
  3. LEXAPRO [Concomitant]

REACTIONS (2)
  - Suicide attempt [None]
  - Overdose [None]
